FAERS Safety Report 9150133 (Version 1)
Quarter: 2013Q1

REPORT INFORMATION
  Report Type: Spontaneous
  Country: US (occurrence: None)
  Receive Date: 20130204
  Receipt Date: 20130204
  Transmission Date: 20140127
  Serious: Yes (Other)
  Sender: FDA-Public Use
  Company Number: TPA2012A08155

PATIENT
  Age: 62 Year
  Sex: Male

DRUGS (2)
  1. ACTOS (PIOGLITAZONE HYDROCHLORIDE) [Suspect]
     Indication: TYPE 2 DIABETES MELLITUS
     Dates: start: 200804, end: 201110
  2. LANTUS (INSULIN / /2004 - GLARGINE) [Concomitant]

REACTIONS (2)
  - Bladder cancer [None]
  - Bladder disorder [None]
